FAERS Safety Report 9500212 (Version 1)
Quarter: 2013Q3

REPORT INFORMATION
  Report Type: Spontaneous
  Country: US (occurrence: None)
  Receive Date: 20130904
  Receipt Date: 20130904
  Transmission Date: 20140515
  Serious: Yes (Life-Threatening, Hospitalization)
  Sender: FDA-Public Use
  Company Number: None

PATIENT
  Age: 66 Year
  Sex: Male
  Weight: 103 kg

DRUGS (2)
  1. IBUPROFEN [Suspect]
     Indication: PAIN
     Route: 048
  2. LISINOPRIL/HCTZ [Concomitant]

REACTIONS (2)
  - Renal failure acute [None]
  - Hypophagia [None]
